FAERS Safety Report 15187713 (Version 1)
Quarter: 2018Q3

REPORT INFORMATION
  Report Type: Spontaneous
  Country: US (occurrence: US)
  Receive Date: 20180724
  Receipt Date: 20180724
  Transmission Date: 20181010
  Serious: Yes (Death, Other)
  Sender: FDA-Public Use
  Company Number: US-AUROBINDO-AUR-APL-2018-035827

PATIENT
  Age: 48 Year
  Sex: Male

DRUGS (3)
  1. TACROLIMUS. [Suspect]
     Active Substance: TACROLIMUS
     Indication: IMMUNOSUPPRESSION
     Dosage: UNK
     Route: 065
  2. METHYLPREDNISOLONE. [Suspect]
     Active Substance: METHYLPREDNISOLONE
     Indication: IMMUNOSUPPRESSION
     Route: 065
  3. PREDNISONE. [Suspect]
     Active Substance: PREDNISONE
     Indication: IMMUNOSUPPRESSION
     Route: 065

REACTIONS (13)
  - Arthralgia [Unknown]
  - Peritonitis [Unknown]
  - Bacterial infection [Unknown]
  - Osteomyelitis [Fatal]
  - Synovitis [Unknown]
  - Abdominal pain [Unknown]
  - Abdominal tenderness [Unknown]
  - Abscess [Unknown]
  - Enteritis [Unknown]
  - Pyrexia [Unknown]
  - Escherichia infection [Unknown]
  - Arthritis reactive [Unknown]
  - Vena cava thrombosis [Unknown]
